FAERS Safety Report 19624883 (Version 9)
Quarter: 2022Q1

REPORT INFORMATION
  Report Type: Report from Study
  Country: KR (occurrence: None)
  Receive Date: 20210729
  Receipt Date: 20220221
  Transmission Date: 20220423
  Serious: Yes (Hospitalization)
  Sender: FDA-Public Use
  Company Number: KR-ROCHE-2877293

PATIENT
  Age: 58 Year
  Sex: Female
  Weight: 72.15 kg

DRUGS (56)
  1. MOSUNETUZUMAB [Suspect]
     Active Substance: MOSUNETUZUMAB
     Indication: Non-Hodgkin^s lymphoma
     Dosage: START DATE OF MOST RECENT DOSE OF MOSUNETUZUMAB PRIOR TO SAE: 02/JUL/2021 (DOSE: 30 MG)
     Route: 042
     Dates: start: 20210429
  2. POLATUZUMAB VEDOTIN [Suspect]
     Active Substance: POLATUZUMAB VEDOTIN
     Indication: Non-Hodgkin^s lymphoma
     Dosage: START DATE OF MOST RECENT DOSE OF POLATUZUMAB VEDOTIN PRIOR TO SAE: 02/JUL/2021 (DOSE: 135 MG)
     Route: 042
     Dates: start: 20210429
  3. CYCLOPHOSPHAMIDE [Suspect]
     Active Substance: CYCLOPHOSPHAMIDE
     Indication: Non-Hodgkin^s lymphoma
     Dosage: START DATE OF MOST RECENT DOSE OF CYCLOPHOSPHAMIDE PRIOR TO SAE: 02/JUL/2021 (DOSE: 1327.5 MG)
     Route: 042
     Dates: start: 20210429
  4. DOXORUBICIN [Suspect]
     Active Substance: DOXORUBICIN
     Indication: Non-Hodgkin^s lymphoma
     Dosage: START DATE OF MOST RECENT DOSE OF DOXORUBICIN PRIOR TO SAE: 02/JUL/2021 (DOSE: 88.5 MG)
     Route: 042
     Dates: start: 20210429
  5. PREDNISONE [Suspect]
     Active Substance: PREDNISONE
     Indication: Non-Hodgkin^s lymphoma
     Dosage: START DATE OF MOST RECENT DOSE OF PREDNISONE PRIOR TO SAE: 06/JUL/2021 (DOSE: 100 MG)
     Route: 048
     Dates: start: 20210429
  6. ONDANSETRON [Concomitant]
     Active Substance: ONDANSETRON
     Route: 048
     Dates: start: 20210501
  7. ONDANSETRON [Concomitant]
     Active Substance: ONDANSETRON
     Route: 048
     Dates: start: 20210604, end: 20210731
  8. GRANISETRON [Concomitant]
     Active Substance: GRANISETRON
     Route: 061
     Dates: start: 20210506, end: 20210722
  9. TRAMADOL [Concomitant]
     Active Substance: TRAMADOL
     Route: 048
     Dates: start: 20210519, end: 20210825
  10. TRAMADOL [Concomitant]
     Active Substance: TRAMADOL
     Route: 048
     Dates: start: 20210928, end: 20210928
  11. TRAMADOL [Concomitant]
     Active Substance: TRAMADOL
     Route: 048
     Dates: start: 20211015
  12. PREDNISOLONE [Concomitant]
     Active Substance: PREDNISOLONE
     Route: 048
     Dates: start: 20210520
  13. PREDNISOLONE [Concomitant]
     Active Substance: PREDNISOLONE
     Route: 048
     Dates: start: 20210702, end: 20210706
  14. PREDNISOLONE [Concomitant]
     Active Substance: PREDNISOLONE
     Route: 048
     Dates: start: 20210804, end: 20210818
  15. PREDNISOLONE [Concomitant]
     Active Substance: PREDNISOLONE
     Route: 048
     Dates: start: 20210819, end: 20210825
  16. DIMETHICONE\PANCRELIPASE\URSODIOL [Concomitant]
     Active Substance: DIMETHICONE\PANCRELIPASE\URSODIOL
     Route: 048
     Dates: start: 20210604, end: 20210701
  17. FAMOTIDINE [Concomitant]
     Active Substance: FAMOTIDINE
     Route: 048
     Dates: start: 20210702, end: 20210722
  18. CHLORPHENIRAMINE [Concomitant]
     Active Substance: CHLORPHENIRAMINE
     Route: 042
     Dates: start: 20210702, end: 20210702
  19. CHLORPHENIRAMINE [Concomitant]
     Active Substance: CHLORPHENIRAMINE
     Route: 042
     Dates: start: 20210830, end: 20210902
  20. PALONOSETRON [Concomitant]
     Active Substance: PALONOSETRON
     Route: 042
     Dates: start: 20210702, end: 20210702
  21. CALCIUM CARBONATE [Concomitant]
     Active Substance: CALCIUM CARBONATE
     Route: 048
     Dates: start: 20210723, end: 20210803
  22. MEPERIDINE [Concomitant]
     Active Substance: MEPERIDINE
     Route: 042
     Dates: start: 20210727, end: 20210729
  23. CEFUROXIME AXETIL [Concomitant]
     Active Substance: CEFUROXIME AXETIL
     Route: 048
     Dates: start: 20210714, end: 20210718
  24. AMLODIPINE [Concomitant]
     Active Substance: AMLODIPINE BESYLATE
     Route: 048
     Dates: start: 20210828, end: 20210828
  25. AMLODIPINE [Concomitant]
     Active Substance: AMLODIPINE BESYLATE
     Route: 048
     Dates: start: 20210903, end: 20210904
  26. ACYCLOVIR [Concomitant]
     Active Substance: ACYCLOVIR
     Route: 042
     Dates: start: 20210830, end: 20210901
  27. ACYCLOVIR [Concomitant]
     Active Substance: ACYCLOVIR
     Route: 042
     Dates: start: 20210901, end: 20210906
  28. ACYCLOVIR [Concomitant]
     Active Substance: ACYCLOVIR
     Route: 042
     Dates: start: 20211001, end: 20211014
  29. UNSPECIFIED INGREDIENT [Concomitant]
     Active Substance: UNSPECIFIED INGREDIENT
     Route: 042
     Dates: start: 20210830, end: 20210830
  30. UNSPECIFIED INGREDIENT [Concomitant]
     Active Substance: UNSPECIFIED INGREDIENT
     Route: 042
     Dates: start: 20210906, end: 20210910
  31. POTASSIUM CHLORIDE [Concomitant]
     Active Substance: POTASSIUM CHLORIDE
     Dates: start: 20210831
  32. POTASSIUM CHLORIDE [Concomitant]
     Active Substance: POTASSIUM CHLORIDE
     Route: 042
     Dates: start: 20210930, end: 20211001
  33. POTASSIUM CHLORIDE [Concomitant]
     Active Substance: POTASSIUM CHLORIDE
     Route: 048
     Dates: start: 20211011, end: 20211014
  34. HUMAN IMMUNOGLOBULIN G [Concomitant]
     Active Substance: HUMAN IMMUNOGLOBULIN G
     Route: 042
     Dates: start: 20210831, end: 20210831
  35. HUMAN IMMUNOGLOBULIN G [Concomitant]
     Active Substance: HUMAN IMMUNOGLOBULIN G
     Route: 042
     Dates: start: 20210901, end: 20210902
  36. HYDROCORTISONE [Concomitant]
     Active Substance: HYDROCORTISONE
     Route: 042
     Dates: start: 20210831, end: 20210902
  37. MONTMORILLONITE [Concomitant]
     Active Substance: MONTMORILLONITE
     Route: 048
     Dates: start: 20210901, end: 20210901
  38. MONTMORILLONITE [Concomitant]
     Active Substance: MONTMORILLONITE
     Route: 048
     Dates: start: 20211001
  39. FUSIDATE SODIUM [Concomitant]
     Active Substance: FUSIDATE SODIUM
     Route: 061
     Dates: start: 20210901
  40. METOCLOPRAMIDE [Concomitant]
     Active Substance: METOCLOPRAMIDE
     Route: 042
     Dates: start: 20210902, end: 20210902
  41. GABAPENTIN [Concomitant]
     Active Substance: GABAPENTIN
     Route: 048
     Dates: start: 20210906
  42. GABAPENTIN [Concomitant]
     Active Substance: GABAPENTIN
     Route: 048
     Dates: start: 20210928, end: 20210928
  43. CIPROFLOXACIN [Concomitant]
     Active Substance: CIPROFLOXACIN
     Route: 042
     Dates: start: 20210927, end: 20210929
  44. TETRACOSACTRIN [Concomitant]
     Dates: start: 20210928, end: 20210928
  45. COOLPREP [Concomitant]
     Route: 048
     Dates: start: 20210928, end: 20210928
  46. MIRTAZAPINE [Concomitant]
     Active Substance: MIRTAZAPINE
     Route: 048
     Dates: start: 20210930, end: 20211006
  47. LOPERAMIDE HYDROCHLORIDE [Concomitant]
     Active Substance: LOPERAMIDE HYDROCHLORIDE
     Route: 048
     Dates: start: 20211001, end: 20211001
  48. LOPERAMIDE HYDROCHLORIDE [Concomitant]
     Active Substance: LOPERAMIDE HYDROCHLORIDE
     Route: 048
     Dates: start: 20211007
  49. LOPERAMIDE HYDROCHLORIDE [Concomitant]
     Active Substance: LOPERAMIDE HYDROCHLORIDE
     Route: 048
     Dates: start: 20211007
  50. TRIMEBUTINE MALEATE [Concomitant]
     Active Substance: TRIMEBUTINE MALEATE
     Route: 048
     Dates: start: 20211003, end: 20211004
  51. PHAZYME [Concomitant]
     Active Substance: DIMETHICONE 410
     Route: 048
     Dates: start: 20211005, end: 20211005
  52. RAMOSETRON HYDROCHLORIDE [Concomitant]
     Active Substance: RAMOSETRON HYDROCHLORIDE
     Route: 048
     Dates: start: 20211006, end: 20211012
  53. RAMOSETRON HYDROCHLORIDE [Concomitant]
     Active Substance: RAMOSETRON HYDROCHLORIDE
     Route: 048
     Dates: start: 20211014
  54. SODIUM BICARBONATE [Concomitant]
     Active Substance: SODIUM BICARBONATE
     Route: 048
     Dates: start: 20211008, end: 20211009
  55. GRANISETRON [Concomitant]
     Active Substance: GRANISETRON
     Route: 061
     Dates: start: 20210506, end: 20210722
  56. CEFTRIAXONE SODIUM [Concomitant]
     Active Substance: CEFTRIAXONE SODIUM
     Route: 042
     Dates: start: 20210827, end: 20210828

REACTIONS (3)
  - Pneumonitis [Recovered/Resolved]
  - Decreased appetite [Not Recovered/Not Resolved]
  - Abdominal pain [Not Recovered/Not Resolved]

NARRATIVE: CASE EVENT DATE: 20210720
